FAERS Safety Report 25769893 (Version 2)
Quarter: 2025Q4

REPORT INFORMATION
  Report Type: Spontaneous
  Country: US (occurrence: US)
  Receive Date: 20250907
  Receipt Date: 20251006
  Transmission Date: 20260118
  Serious: Yes (Death, Hospitalization)
  Sender: RECORDATI
  Company Number: US-ORPHANEU-2025005164

PATIENT
  Sex: Female
  Weight: 72.4 kg

DRUGS (3)
  1. SYLVANT [Suspect]
     Active Substance: SILTUXIMAB
     Indication: Castleman^s disease
     Dosage: SYLVANT: 100 MG (STANDARD EVERY-3-WEEK SCHEDULE OF SYLVANT)
  2. SYLVANT [Suspect]
     Active Substance: SILTUXIMAB
     Dosage: SYLVANT: 400 MG (STANDARD EVERY-3-WEEK SCHEDULE OF SYLVANT)
  3. SYLVANT [Suspect]
     Active Substance: SILTUXIMAB
     Dosage: PRESCRIBED WITH 700 MG IV EVERY 7 DAYS/ONCE A WEEK
     Route: 042

REACTIONS (6)
  - Respiratory disorder [Fatal]
  - Acute kidney injury [Unknown]
  - Diarrhoea [Unknown]
  - Weight increased [Unknown]
  - Drug ineffective [Recovered/Resolved]
  - Off label use [Recovered/Resolved]

NARRATIVE: CASE EVENT DATE: 20250101
